FAERS Safety Report 7941637-2 (Version None)
Quarter: 2011Q4

REPORT INFORMATION
  Report Type: 
  Country: None (occurrence: None)
  Receive Date: 20111122
  Receipt Date: 20111122
  Transmission Date: 20120403
  Serious: No
  Sender: FDA-Public Use
  Company Number: None

PATIENT
  Sex: Male

DRUGS (2)
  1. NEXAVAR [Suspect]
     Indication: MUSCULOSKELETAL DISORDER
     Dosage: (PAP) NEXAVAR 200MG TABLET 200 MG PO
     Route: 048
     Dates: start: 20111022
  2. NEXAVAR [Suspect]
     Indication: CONNECTIVE TISSUE DISORDER
     Dosage: (PAP) NEXAVAR 200MG TABLET 200 MG PO
     Route: 048
     Dates: start: 20111022

REACTIONS (3)
  - ARTHRALGIA [None]
  - CONNECTIVE TISSUE DISORDER [None]
  - MUSCULOSKELETAL DISORDER [None]
